FAERS Safety Report 6065381-4 (Version None)
Quarter: 2009Q1

REPORT INFORMATION
  Report Type: 
  Country: None (occurrence: None)
  Receive Date: 20090204
  Receipt Date: 20090130
  Transmission Date: 20090719
  Serious: Yes (Hospitalization)
  Sender: FDA-Public Use
  Company Number: IT-GENENTECH-276423

PATIENT
  Sex: Male

DRUGS (3)
  1. RAPTIVA [Suspect]
     Indication: PSORIASIS
     Dosage: 1 MG/KG, 1/WEEK
     Route: 058
     Dates: start: 20070701, end: 20081120
  2. METHOTREXATE [Concomitant]
     Indication: PSORIASIS
     Dosage: 7.5 MG, UNK
     Route: 048
  3. TELMISARTAN [Concomitant]
     Indication: HYPERTENSION
     Dosage: UN K

REACTIONS (3)
  - AGITATION [None]
  - CONFUSIONAL STATE [None]
  - PSYCHOMOTOR HYPERACTIVITY [None]
